FAERS Safety Report 8986800 (Version 3)
Quarter: 2013Q1

REPORT INFORMATION
  Report Type: Spontaneous
  Country: DE (occurrence: DE)
  Receive Date: 20121227
  Receipt Date: 20130128
  Transmission Date: 20140127
  Serious: Yes (Hospitalization)
  Sender: FDA-Public Use
  Company Number: PHHY2012DE118975

PATIENT
  Age: 49 None
  Sex: Female
  Weight: 56 kg

DRUGS (4)
  1. GLIVEC [Suspect]
     Indication: GASTROINTESTINAL STROMAL TUMOUR
     Dosage: 800 MG, QD
     Route: 048
     Dates: start: 200702, end: 20121115
  2. GLIVEC [Suspect]
     Dosage: 800 MG, QD
     Route: 048
     Dates: start: 20121223
  3. DYTIDE H [Concomitant]
  4. PANTOZOL [Concomitant]
     Dosage: 40 MG, A DAY

REACTIONS (7)
  - Anal fistula [Not Recovered/Not Resolved]
  - Abdominal wall disorder [Not Recovered/Not Resolved]
  - Impaired healing [Not Recovered/Not Resolved]
  - Metastasis [Unknown]
  - Ileus [Not Recovered/Not Resolved]
  - Small intestinal perforation [Not Recovered/Not Resolved]
  - Ileal fistula [Not Recovered/Not Resolved]
